FAERS Safety Report 14693125 (Version 1)
Quarter: 2018Q1

REPORT INFORMATION
  Report Type: Spontaneous
  Country: US (occurrence: US)
  Receive Date: 20180329
  Receipt Date: 20180329
  Transmission Date: 20180509
  Serious: Yes (Hospitalization)
  Sender: FDA-Public Use
  Company Number: US-CIPLA LTD.-2018US13498

PATIENT

DRUGS (1)
  1. RISPERIDONE. [Suspect]
     Active Substance: RISPERIDONE
     Indication: SCHIZOPHRENIA
     Dosage: 50 MG, MICROSPHERES EVERY 2 WEEKS FOR THE PAST 10 YEARS
     Route: 065

REACTIONS (3)
  - Pleural effusion [Recovered/Resolved]
  - Pneumonia aspiration [Recovered/Resolved]
  - Dysphagia [Recovered/Resolved]
